FAERS Safety Report 10750915 (Version 1)
Quarter: 2015Q1

REPORT INFORMATION
  Report Type: Report from Study
  Country: GB (occurrence: GB)
  Receive Date: 20150130
  Receipt Date: 20150130
  Transmission Date: 20150721
  Serious: Yes (Other)
  Sender: FDA-Public Use
  Company Number: GB-JNJFOC-20150114213

PATIENT
  Sex: Female

DRUGS (1)
  1. XARELTO [Suspect]
     Active Substance: RIVAROXABAN
     Indication: ANTIPHOSPHOLIPID SYNDROME
     Route: 048

REACTIONS (6)
  - Headache [Unknown]
  - Menstrual disorder [Unknown]
  - Blood iron decreased [Unknown]
  - Fatigue [Unknown]
  - Gingival bleeding [Unknown]
  - Contusion [Unknown]
